FAERS Safety Report 9291960 (Version 2)
Quarter: 2013Q1

REPORT INFORMATION
  Report Type: Spontaneous
  Country: US (occurrence: None)
  Receive Date: 20121024
  Receipt Date: 20121207
  Transmission Date: 20140127
  Serious: Yes (Death, Life-Threatening, Hospitalization)
  Sender: FDA-Public Use
  Company Number: 2012-0902

PATIENT
  Age: 60 Year
  Sex: Male

DRUGS (1)
  1. KYPROLIS (CARFILZOMIB) (INJECTION FOR INFUSION) (CARFILZOMIB) [Suspect]
     Indication: PRODUCT USED FOR UNKNOWN INDICATION
     Dates: start: 20120914

REACTIONS (8)
  - Acute respiratory distress syndrome [None]
  - Asthenia [None]
  - Plasma cell myeloma [None]
  - Immunosuppression [None]
  - Hypogammaglobulinaemia [None]
  - Bone marrow failure [None]
  - Respiratory failure [None]
  - Sepsis [None]
